FAERS Safety Report 4999521-2 (Version None)
Quarter: 2006Q2

REPORT INFORMATION
  Report Type: 
  Country: None (occurrence: None)
  Receive Date: 20060511
  Receipt Date: 20060418
  Transmission Date: 20061013
  Serious: Yes (Other)
  Sender: FDA-Public Use
  Company Number: PHEH2006US05069

PATIENT
  Age: 49 Year
  Sex: Male

DRUGS (2)
  1. ZOMETA [Suspect]
     Indication: METASTASES TO BONE
     Dosage: 4 MG, Q 4 WEEK
     Dates: start: 20050816, end: 20060330
  2. GEMZAR [Concomitant]
     Dosage: 1000 MG/M2, OVER 30 MINS
     Dates: start: 20050809, end: 20060330

REACTIONS (8)
  - ANAEMIA [None]
  - ERYTHEMA [None]
  - GASTRIC ULCER HAEMORRHAGE [None]
  - GINGIVAL PAIN [None]
  - LOCAL SWELLING [None]
  - OSTEONECROSIS [None]
  - PAIN [None]
  - TOOTHACHE [None]
